FAERS Safety Report 20810330 (Version 1)
Quarter: 2022Q2

REPORT INFORMATION
  Report Type: Spontaneous
  Country: US (occurrence: None)
  Receive Date: 20220510
  Receipt Date: 20220510
  Transmission Date: 20220721
  Serious: Yes (Death, Hospitalization)
  Sender: FDA-Public Use
  Company Number: None

PATIENT
  Age: 79 Year
  Sex: Male

DRUGS (1)
  1. ESBRIET [Suspect]
     Active Substance: PIRFENIDONE
     Indication: Idiopathic pulmonary fibrosis
     Dosage: FREQUENCY : 3 TIMES A DAY;?
     Route: 048
     Dates: start: 20180619, end: 20220410

REACTIONS (6)
  - Acute kidney injury [None]
  - Liver function test increased [None]
  - Chronic respiratory failure [None]
  - Hypervolaemia [None]
  - Antineutrophil cytoplasmic antibody positive [None]
  - Glomerulonephritis rapidly progressive [None]

NARRATIVE: CASE EVENT DATE: 20220427
